FAERS Safety Report 4373859-4 (Version None)
Quarter: 2004Q1

REPORT INFORMATION
  Report Type: 
  Country: None (occurrence: None)
  Receive Date: 20040305
  Receipt Date: 20040116
  Transmission Date: 20041129
  Serious: Yes (Other)
  Sender: FDA-Public Use
  Company Number: 2004UW00889

PATIENT
  Age: 63 Year
  Sex: Female
  Weight: 97.5234 kg

DRUGS (6)
  1. CRESTOR [Suspect]
     Indication: BLOOD CHOLESTEROL INCREASED
     Dosage: 10 MG PO
     Route: 048
  2. LASIX [Concomitant]
  3. ATENOLOL [Concomitant]
  4. DILTIAZEM [Concomitant]
  5. NAPROXEN [Concomitant]
  6. FLEXERIL [Concomitant]

REACTIONS (2)
  - MUSCLE CRAMP [None]
  - WEIGHT DECREASED [None]
